FAERS Safety Report 7411657-5 (Version None)
Quarter: 2011Q2

REPORT INFORMATION
  Report Type: 
  Country: None (occurrence: None)
  Receive Date: 20110413
  Receipt Date: 20101203
  Transmission Date: 20111010
  Serious: Yes (Hospitalization)
  Sender: FDA-Public Use
  Company Number: US-BRISTOL-MYERS SQUIBB COMPANY-15332935

PATIENT
  Age: 68 Year
  Sex: Male

DRUGS (2)
  1. ERBITUX [Suspect]
     Indication: COLON CANCER
     Dosage: LOADING DOSE:400MG/M2, LATER 250MG/M2 EVERY WEEK FOR 52 WEEKS
     Route: 042
     Dates: start: 20100916
  2. FLU VACCINE [Suspect]

REACTIONS (6)
  - CHILLS [None]
  - BLOOD PRESSURE INCREASED [None]
  - BACK PAIN [None]
  - OXYGEN SATURATION DECREASED [None]
  - HEART RATE INCREASED [None]
  - CYANOSIS [None]
